FAERS Safety Report 17191188 (Version 2)
Quarter: 2019Q4

REPORT INFORMATION
  Report Type: Spontaneous
  Country: SE (occurrence: SE)
  Receive Date: 20191223
  Receipt Date: 20191226
  Transmission Date: 20200122
  Serious: Yes (Hospitalization, Other)
  Sender: FDA-Public Use
  Company Number: SE-PFIZER INC-2019549676

PATIENT
  Age: 50 Year
  Sex: Male

DRUGS (2)
  1. LYRICA [Suspect]
     Active Substance: PREGABALIN
     Dosage: 600 MG, UNK
     Route: 048
     Dates: start: 20190316, end: 20190316
  2. PROPAVAN [Suspect]
     Active Substance: PROPIOMAZINE
     Dosage: 625 MG, UNK
     Route: 048
     Dates: start: 20190316, end: 20190316

REACTIONS (5)
  - Electrocardiogram abnormal [Unknown]
  - Tachycardia [Unknown]
  - Drug abuse [Unknown]
  - Fatigue [Unknown]
  - Intentional overdose [Unknown]

NARRATIVE: CASE EVENT DATE: 20190316
